FAERS Safety Report 16028090 (Version 2)
Quarter: 2020Q1

REPORT INFORMATION
  Report Type: Spontaneous
  Country: GB (occurrence: GB)
  Receive Date: 20190304
  Receipt Date: 20200217
  Transmission Date: 20200409
  Serious: Yes (Other)
  Sender: FDA-Public Use
  Company Number: GB-009507513-1902GBR010524

PATIENT
  Sex: Female

DRUGS (4)
  1. APIXABAN [Concomitant]
     Active Substance: APIXABAN
     Dosage: 5 MILLIGRAM, QD
  2. FLUOXETINE [Concomitant]
     Active Substance: FLUOXETINE HYDROCHLORIDE
     Dosage: 40 MILLIGRAM, QD
  3. NEXPLANON [Suspect]
     Active Substance: ETONOGESTREL
     Indication: CONTRACEPTION
     Dosage: 1 DOSAGE FORM
     Dates: start: 20171216, end: 20181208
  4. PREGABALIN. [Concomitant]
     Active Substance: PREGABALIN
     Dosage: 50 MILLIGRAM, QD

REACTIONS (3)
  - Pregnancy with implant contraceptive [Unknown]
  - Abortion spontaneous [Unknown]
  - Maternal exposure during pregnancy [Unknown]

NARRATIVE: CASE EVENT DATE: 20181208
